FAERS Safety Report 18985741 (Version 1)
Quarter: 2021Q1

REPORT INFORMATION
  Report Type: Spontaneous
  Country: US (occurrence: US)
  Receive Date: 20210308
  Receipt Date: 20210308
  Transmission Date: 20210420
  Serious: No
  Sender: FDA-Public Use
  Company Number: None

PATIENT
  Age: 69 Year
  Sex: Male
  Weight: 142.2 kg

DRUGS (2)
  1. TRAMETINIB [Suspect]
     Active Substance: TRAMETINIB
     Indication: METASTATIC MALIGNANT MELANOMA
     Route: 048
     Dates: start: 20201218, end: 20210308
  2. TAFINLAR [Concomitant]
     Active Substance: DABRAFENIB MESYLATE
     Dates: start: 20201218, end: 20210308

REACTIONS (5)
  - Pyrexia [None]
  - Diaphragmalgia [None]
  - Toxicity to various agents [None]
  - Cough [None]
  - Infection [None]

NARRATIVE: CASE EVENT DATE: 20210308
